FAERS Safety Report 8950387 (Version 1)
Quarter: 2012Q4

REPORT INFORMATION
  Report Type: Report from Study
  Country: CA (occurrence: CA)
  Receive Date: 20121207
  Receipt Date: 20121207
  Transmission Date: 20130627
  Serious: Yes (Other)
  Sender: FDA-Public Use
  Company Number: CA-JNJFOC-20121115117

PATIENT
  Sex: Male

DRUGS (3)
  1. REMICADE [Suspect]
     Indication: CROHN^S DISEASE
     Route: 042
     Dates: start: 2010
  2. REMICADE [Suspect]
     Indication: CROHN^S DISEASE
     Dosage: since atleast 6 months prior to the time of reporting
     Route: 042
     Dates: start: 2012
  3. CORTISONE [Concomitant]
     Route: 065
     Dates: start: 201205, end: 201206

REACTIONS (3)
  - Large intestine polyp [Not Recovered/Not Resolved]
  - Gastrointestinal infection [Recovering/Resolving]
  - Drug ineffective [Recovering/Resolving]
